FAERS Safety Report 8181444-1 (Version None)
Quarter: 2012Q1

REPORT INFORMATION
  Report Type: 
  Country: None (occurrence: None)
  Receive Date: 20120302
  Receipt Date: 20120221
  Transmission Date: 20120608
  Serious: Yes (Death, Hospitalization)
  Sender: FDA-Public Use
  Company Number: PH-BAXTER-2012BH005337

PATIENT
  Age: 33 Year
  Sex: Female

DRUGS (1)
  1. DIANEAL [Suspect]
     Indication: PERITONEAL DIALYSIS
     Route: 033
     Dates: start: 20100305, end: 20120219

REACTIONS (5)
  - PALPITATIONS [None]
  - DECREASED APPETITE [None]
  - ARRHYTHMIA [None]
  - OEDEMA [None]
  - SUDDEN CARDIAC DEATH [None]
